FAERS Safety Report 4280684-1 (Version None)
Quarter: 2004Q1

REPORT INFORMATION
  Report Type: 
  Country: None (occurrence: None)
  Receive Date: 20040127
  Receipt Date: 20031218
  Transmission Date: 20041129
  Serious: No
  Sender: FDA-Public Use
  Company Number: 03P-163-0244664-00

PATIENT
  Age: 73 Year
  Sex: Female
  Weight: 51.2565 kg

DRUGS (10)
  1. HUMIRA [Suspect]
     Indication: RHEUMATOID ARTHRITIS
     Dosage: SEE IMAGE
     Route: 058
     Dates: start: 20030430, end: 20030901
  2. HUMIRA [Suspect]
     Indication: RHEUMATOID ARTHRITIS
     Dosage: SEE IMAGE
     Route: 058
     Dates: start: 20031001
  3. VOLTAREN [Concomitant]
  4. CETIRIZINE HYDROCHLORIDE [Concomitant]
  5. RABEPRAZOLE SODIUM [Concomitant]
  6. CALCIUM [Concomitant]
  7. OXYCOCET [Concomitant]
  8. PSYLLIUM HYDROPHILIC MUCILLOID [Concomitant]
  9. MULTIVITAMIN [Concomitant]
  10. FLUTICASONE PROPIONATE [Concomitant]

REACTIONS (6)
  - ARTHRALGIA [None]
  - DIARRHOEA [None]
  - HAEMATOCHEZIA [None]
  - JOINT STIFFNESS [None]
  - SCIATICA [None]
  - SPINAL COLUMN STENOSIS [None]
